FAERS Safety Report 5700636-1 (Version None)
Quarter: 2008Q2

REPORT INFORMATION
  Report Type: 
  Country: None (occurrence: None)
  Receive Date: 20080410
  Receipt Date: 20080401
  Transmission Date: 20081010
  Serious: Yes (Hospitalization, Other)
  Sender: FDA-Public Use
  Company Number: DK-ASTRAZENECA-2007SE05377

PATIENT
  Age: 706 Month
  Sex: Male

DRUGS (4)
  1. CASODEX [Suspect]
     Indication: PROSTATE CANCER
     Dates: start: 20070401, end: 20070430
  2. CASODEX [Suspect]
     Dates: start: 20070604, end: 20070820
  3. CASODEX [Suspect]
     Dates: start: 20070828, end: 20070906
  4. RAMIPRIL [Concomitant]
     Indication: BLOOD PRESSURE INCREASED

REACTIONS (7)
  - DYSGEUSIA [None]
  - FAECES PALE [None]
  - FATIGUE [None]
  - LIVER FUNCTION TEST ABNORMAL [None]
  - NAUSEA [None]
  - PAROSMIA [None]
  - URINE COLOUR ABNORMAL [None]
